FAERS Safety Report 19267853 (Version 1)
Quarter: 2021Q2

REPORT INFORMATION
  Report Type: Spontaneous
  Country: US (occurrence: US)
  Receive Date: 20210518
  Receipt Date: 20210518
  Transmission Date: 20210717
  Serious: No
  Sender: FDA-Public Use
  Company Number: US-ASTRAZENECA-2021A403892

PATIENT
  Sex: Female

DRUGS (4)
  1. METFORMIN [Suspect]
     Active Substance: METFORMIN HYDROCHLORIDE
     Route: 065
  2. RYBELSUS [Concomitant]
     Active Substance: SEMAGLUTIDE
     Dosage: 3.0MG UNKNOWN
     Route: 065
  3. FARXIGA [Suspect]
     Active Substance: DAPAGLIFLOZIN PROPANEDIOL
     Route: 048
  4. RYBELSUS [Concomitant]
     Active Substance: SEMAGLUTIDE
     Dosage: 7.0MG UNKNOWN
     Route: 065

REACTIONS (9)
  - Dizziness [Unknown]
  - Weight decreased [Unknown]
  - Nausea [Unknown]
  - Feeling abnormal [Unknown]
  - Diarrhoea [Not Recovered/Not Resolved]
  - Headache [Unknown]
  - Constipation [Unknown]
  - Illness [Unknown]
  - Fatigue [Unknown]
